FAERS Safety Report 4574539-2 (Version None)
Quarter: 2005Q1

REPORT INFORMATION
  Report Type: 
  Country: None (occurrence: None)
  Receive Date: 20050204
  Receipt Date: 20050126
  Transmission Date: 20050727
  Serious: Yes (Hospitalization, Other)
  Sender: FDA-Public Use
  Company Number: 200510120BWH

PATIENT
  Age: 41 Year
  Sex: Female

DRUGS (9)
  1. AVELOX [Suspect]
     Indication: RESPIRATORY TRACT INFECTION
     Dosage: 400 MG, QD, ORAL
     Route: 048
     Dates: start: 20041221, end: 20041225
  2. AVELOX [Suspect]
     Indication: SINUSITIS
     Dosage: 400 MG, QD, ORAL
     Route: 048
     Dates: start: 20041221, end: 20041225
  3. AVELOX [Suspect]
     Indication: RESPIRATORY TRACT INFECTION
     Dosage: 400 MG, QD, ORAL
     Route: 048
     Dates: start: 20050103, end: 20050107
  4. AVELOX [Suspect]
     Indication: SINUSITIS
     Dosage: 400 MG, QD, ORAL
     Route: 048
     Dates: start: 20050103, end: 20050107
  5. WOMEN'S DAILY VITAMINS FOR MENOPAUSE [Concomitant]
  6. EQUATE PAIN RELIEVER [Concomitant]
  7. ACYCLOVIR [Concomitant]
  8. OXYCONTIN [Concomitant]
  9. STOOL SOFTENER [Concomitant]

REACTIONS (12)
  - DYSPNOEA [None]
  - ENCEPHALITIS [None]
  - HYPOTENSION [None]
  - LYMPHANGITIS [None]
  - LYMPHATIC DISORDER [None]
  - MENINGITIS [None]
  - MENINGITIS VIRAL [None]
  - PLEURAL EFFUSION [None]
  - PNEUMONIA [None]
  - SWELLING FACE [None]
  - TREMOR [None]
  - VISUAL ACUITY REDUCED [None]
